FAERS Safety Report 6818756-7 (Version None)
Quarter: 2010Q2

REPORT INFORMATION
  Report Type: 
  Country: None (occurrence: None)
  Receive Date: 20100630
  Receipt Date: 20100621
  Transmission Date: 20101027
  Serious: Yes (Hospitalization)
  Sender: FDA-Public Use
  Company Number: 2010TJ0118FU1

PATIENT
  Age: 39 Year
  Sex: Female
  Weight: 76.7 kg

DRUGS (7)
  1. EPINEPHRINE [Suspect]
     Indication: PREGNANCY
     Dosage: ONCE DAILY (TOTAL OF 2 DAYS AND 8 DAYS PRIOR TO ADMISSION)
  2. AMINOPHYLLINE [Suspect]
     Indication: MESOTHERAPY
     Dosage: (TOTAL OF 2 DAYS AND 8 DAYS PRIOR TO ADMISSION)
  3. FLUOXETINE HCL [Suspect]
     Indication: OBESITY
     Dosage: 10 MG, TWICE PER DAY, ORAL(TOTAL OF 2 DAYS AND 8 DAYS PRIOR TO ADMISSION)
     Route: 048
  4. EPHEDRINE HYDROCHLORIDE [Suspect]
     Indication: OBESITY
     Dosage: 10 MG, TWICE PER DAY, ORAL (TOTAL OF 2 DAYS AND 8 DAYS PRIOR TO ADMISSION)
     Route: 048
  5. ANHYDROUS CAFFEINE [Suspect]
     Indication: OBESITY
     Dosage: 50 MG, TWICE PER DAY, ORAL (TOTAL OF 2 DAYS AND 8 DAYS PRIOR TO ADMISSION)
     Route: 048
  6. GREEN TEA POWDER [Suspect]
     Indication: OBESITY
     Dosage: 250 MG,TWICE PER DAY, ORAL (TOTAL OF 2 DAYS AND 8 DAYS PRIOR TO ADMISSION)
     Route: 048
  7. LIDOCAINE [Suspect]
     Indication: MESOTHERAPY
     Dosage: ONCE DAILY, INJECTION

REACTIONS (7)
  - COLITIS ISCHAEMIC [None]
  - DEHYDRATION [None]
  - DRUG EXPOSURE DURING PREGNANCY [None]
  - LARGE INTESTINAL ULCER [None]
  - LEUKOCYTOSIS [None]
  - NAUSEA [None]
  - VOMITING [None]
